FAERS Safety Report 24621648 (Version 2)
Quarter: 2025Q1

REPORT INFORMATION
  Report Type: Spontaneous
  Country: US (occurrence: US)
  Receive Date: 20241114
  Receipt Date: 20250120
  Transmission Date: 20250409
  Serious: Yes (Hospitalization, Other)
  Sender: SANOFI AVENTIS
  Company Number: US-SA-2024SA318038

PATIENT
  Age: 62 Year
  Sex: Male
  Weight: 70.45 kg

DRUGS (3)
  1. FABRAZYME [Suspect]
     Active Substance: AGALSIDASE BETA
     Indication: Fabry^s disease
     Dosage: 70 MG, QOW
     Route: 042
     Dates: start: 202401, end: 2024
  2. FABRAZYME [Suspect]
     Active Substance: AGALSIDASE BETA
     Indication: Complement deficiency disease
     Dosage: 70 MG, QOW
     Route: 042
  3. STERILE WATER [Concomitant]
     Active Substance: WATER

REACTIONS (3)
  - Cerebrovascular accident [Unknown]
  - Weight increased [Unknown]
  - Product use in unapproved indication [Unknown]

NARRATIVE: CASE EVENT DATE: 20240101
